FAERS Safety Report 22019636 (Version 1)
Quarter: 2023Q1

REPORT INFORMATION
  Report Type: Other
  Country: CA (occurrence: CA)
  Receive Date: 20230222
  Receipt Date: 20230222
  Transmission Date: 20230417
  Serious: Yes (Other)
  Sender: FDA-Public Use
  Company Number: CA-APOTEX-2023AP003520

PATIENT
  Age: 39 Year
  Sex: Female

DRUGS (1)
  1. LACOSAMIDE [Suspect]
     Active Substance: LACOSAMIDE
     Indication: Brain injury
     Dosage: 200 MILLIGRAM, BID
     Route: 048

REACTIONS (2)
  - Product use in unapproved indication [Unknown]
  - Seizure [Unknown]
